FAERS Safety Report 26070203 (Version 1)
Quarter: 2025Q4

REPORT INFORMATION
  Report Type: Spontaneous
  Country: US (occurrence: None)
  Receive Date: 20251119
  Receipt Date: 20251119
  Transmission Date: 20260118
  Serious: Yes (Hospitalization, Disabling)
  Sender: FDA-CTU
  Company Number: None

PATIENT
  Age: 28 Year
  Sex: Female
  Weight: 49.5 kg

DRUGS (3)
  1. LEVOFLOXACIN [Suspect]
     Active Substance: LEVOFLOXACIN
     Indication: Urinary tract infection
     Dates: start: 20251007, end: 20251007
  2. Buspar 15mg [Concomitant]
  3. BUPROPION HYDROCHLORIDE [Concomitant]
     Active Substance: BUPROPION HYDROCHLORIDE

REACTIONS (6)
  - Tendon pain [None]
  - Paraesthesia [None]
  - Paraesthesia [None]
  - Panic attack [None]
  - Gait inability [None]
  - Neuralgia [None]

NARRATIVE: CASE EVENT DATE: 20251007
